FAERS Safety Report 6150014-9 (Version None)
Quarter: 2009Q2

REPORT INFORMATION
  Report Type: 
  Country: None (occurrence: None)
  Receive Date: 20090409
  Receipt Date: 20090331
  Transmission Date: 20091009
  Serious: Yes (Life-Threatening, Hospitalization)
  Sender: FDA-Public Use
  Company Number: B0567755A

PATIENT
  Sex: Male
  Weight: 1 kg

DRUGS (8)
  1. RETROVIR [Suspect]
     Indication: ANTIVIRAL PROPHYLAXIS
     Route: 042
     Dates: start: 20090201, end: 20090310
  2. RETROVIR [Suspect]
     Dates: start: 20090201, end: 20090201
  3. CLAMOXYL [Concomitant]
     Dates: start: 20090201, end: 20090201
  4. CORTICOIDS [Concomitant]
     Dates: start: 20090201, end: 20090201
  5. CUROSURF [Concomitant]
     Dosage: 120MG PER DAY
  6. TRIFLUCAN [Concomitant]
  7. VANCOMYCINE [Concomitant]
     Dates: start: 20090220, end: 20090225
  8. HIV TREATMENTS (UNSPECIFIED) [Concomitant]

REACTIONS (2)
  - DRUG EXPOSURE DURING PREGNANCY [None]
  - NECROTISING ENTEROCOLITIS NEONATAL [None]
